FAERS Safety Report 9693046 (Version 1)
Quarter: 2013Q4

REPORT INFORMATION
  Report Type: Spontaneous
  Country: US (occurrence: None)
  Receive Date: 20131115
  Receipt Date: 20131115
  Transmission Date: 20140711
  Serious: Yes (Hospitalization)
  Sender: FDA-Public Use
  Company Number: None

PATIENT
  Age: 68 Year
  Sex: Male
  Weight: 104 kg

DRUGS (15)
  1. GAMMAGARD [Suspect]
     Indication: IMMUNE SYSTEM DISORDER
     Route: 042
     Dates: start: 20131107, end: 20131107
  2. LIPITOR [Concomitant]
  3. TYLENOL [Concomitant]
  4. CALCIUM-VITAMIN D [Concomitant]
  5. DANAZOL [Concomitant]
  6. BENADRYL [Concomitant]
  7. IMDUR [Concomitant]
  8. LATANOPROST [Concomitant]
  9. LEVOTHYROXINE [Concomitant]
  10. LISINOPRIL [Concomitant]
  11. TOPROL XL [Concomitant]
  12. PROTONIX [Concomitant]
  13. PREDNISONE [Concomitant]
  14. TIMOPTIC [Concomitant]
  15. TRAMADOL [Concomitant]

REACTIONS (2)
  - Hypertension [None]
  - Chest pain [None]
